FAERS Safety Report 22817849 (Version 3)
Quarter: 2023Q4

REPORT INFORMATION
  Report Type: Spontaneous
  Country: AU (occurrence: AU)
  Receive Date: 20230813
  Receipt Date: 20231030
  Transmission Date: 20240110
  Serious: Yes (Hospitalization)
  Sender: FDA-Public Use
  Company Number: AU-BRISTOL-MYERS SQUIBB COMPANY-2023-109862

PATIENT
  Sex: Female

DRUGS (2)
  1. ORENCIA [Suspect]
     Active Substance: ABATACEPT
     Indication: Rheumatoid arthritis
     Dosage: 125MG/1ML
     Route: 058
  2. ORENCIA [Suspect]
     Active Substance: ABATACEPT

REACTIONS (7)
  - Drug ineffective [Unknown]
  - Hypoacusis [Unknown]
  - Device difficult to use [Unknown]
  - Device leakage [Unknown]
  - Fall [Unknown]
  - Rib fracture [Unknown]
  - Cardiac disorder [Unknown]
